FAERS Safety Report 7003039-5 (Version None)
Quarter: 2010Q3

REPORT INFORMATION
  Report Type: 
  Country: None (occurrence: None)
  Receive Date: 20100920
  Receipt Date: 20090916
  Transmission Date: 20110219
  Serious: No
  Sender: FDA-Public Use
  Company Number: US-ASTRAZENECA-2009SE13587

PATIENT
  Age: 480 Month
  Sex: Female
  Weight: 113.9 kg

DRUGS (4)
  1. SEROQUEL XR [Suspect]
     Indication: PSYCHOTIC DISORDER
     Route: 048
     Dates: start: 20090101
  2. ADDERALL 10 [Concomitant]
  3. CLOZAPINE [Concomitant]
  4. CYMBALTA [Concomitant]

REACTIONS (3)
  - HOT FLUSH [None]
  - OEDEMA PERIPHERAL [None]
  - WEIGHT INCREASED [None]
